FAERS Safety Report 6330235-2 (Version None)
Quarter: 2009Q3

REPORT INFORMATION
  Report Type: 
  Country: None (occurrence: None)
  Receive Date: 20090826
  Receipt Date: 20090826
  Transmission Date: 20100115
  Serious: Yes (Other)
  Sender: FDA-Public Use
  Company Number: None

PATIENT
  Age: 66 Year
  Sex: Female
  Weight: 72.7 kg

DRUGS (2)
  1. TRUSOPT [Suspect]
     Indication: GLAUCOMA
     Dosage: 2X DAILY 1 DROP IN EYE
     Dates: start: 20090515
  2. COSOPT [Suspect]
     Indication: INTRAOCULAR PRESSURE INCREASED
     Dosage: 2X DAILY 1 DROP IN EYE

REACTIONS (3)
  - DRUG INTERACTION [None]
  - MEDICATION ERROR [None]
  - WRONG DRUG ADMINISTERED [None]
